FAERS Safety Report 5570077-9 (Version None)
Quarter: 2007Q4

REPORT INFORMATION
  Report Type: 
  Country: None (occurrence: None)
  Receive Date: 20071214
  Receipt Date: 20071129
  Transmission Date: 20080405
  Serious: Yes (Hospitalization)
  Sender: FDA-Public Use
  Company Number: S07-AUT-03685-01

PATIENT
  Age: 24 Year
  Sex: Female

DRUGS (5)
  1. CITALOPRAM HYDROBROMIDE [Suspect]
     Indication: ACUTE STRESS DISORDER
     Dosage: 20 MG BID PO
     Route: 048
     Dates: start: 20060123, end: 20060124
  2. CITALOPRAM HYDROBROMIDE [Suspect]
     Indication: ACUTE STRESS DISORDER
     Dosage: 20 MG QD PO
     Route: 048
     Dates: start: 20060121, end: 20060122
  3. MELIANE [Concomitant]
  4. PSYCHOPAX (DIAZEPAM) [Concomitant]
  5. TRUXAL (CHLORPROTHIXENE HYDROCHLORIDE) [Concomitant]

REACTIONS (1)
  - DERMATITIS ALLERGIC [None]
